FAERS Safety Report 8855395 (Version 1)
Quarter: 2012Q4

REPORT INFORMATION
  Report Type: 
  Country: US (occurrence: US)
  Receive Date: 20121023
  Receipt Date: 20121023
  Transmission Date: 20130627
  Serious: No
  Sender: FDA-Public Use
  Company Number: US-AMGEN-USASP2012057502

PATIENT
  Sex: Female

DRUGS (9)
  1. ENBREL [Suspect]
     Indication: PRODUCT USED FOR UNKNOWN INDICATION
     Dosage: 50 mg, qwk
     Route: 058
  2. PRILOSEC                           /00661201/ [Concomitant]
     Dosage: 10 mg, UNK
  3. PROZAC [Concomitant]
     Dosage: 10 mg, UNK
  4. GABAPENTIN [Concomitant]
     Dosage: 100 mg, UNK
  5. LEFLUNOMIDE [Concomitant]
     Dosage: 10 mg, UNK
  6. TRAMADOL HCL [Concomitant]
     Dosage: 50 mg, UNK
  7. VITAMIN D /00107901/ [Concomitant]
     Dosage: 1000 unit, UNK
  8. VITAMIN D3 [Concomitant]
     Dosage: UNK
  9. MULTIVITAMIN                       /00097801/ [Concomitant]
     Dosage: UNK

REACTIONS (3)
  - Insomnia [Unknown]
  - Nervousness [Unknown]
  - Anxiety [Unknown]
